FAERS Safety Report 17299048 (Version 1)
Quarter: 2020Q1

REPORT INFORMATION
  Report Type: Other
  Country: CA (occurrence: CA)
  Receive Date: 20200122
  Receipt Date: 20200122
  Transmission Date: 20200409
  Serious: No
  Sender: FDA-Public Use
  Company Number: CA-APOTEX-2020AP006026

PATIENT
  Sex: Female

DRUGS (1)
  1. GRASTOFIL [Suspect]
     Active Substance: FILGRASTIM
     Indication: BREAST CANCER
     Dosage: 480 ?G, 4 TO 6 DOSES X 6 CYCLES
     Route: 058
     Dates: start: 20191209

REACTIONS (4)
  - Asthenia [Recovered/Resolved]
  - Urticaria [Recovered/Resolved]
  - Diarrhoea [Recovered/Resolved]
  - Nausea [Recovered/Resolved]
